FAERS Safety Report 10565596 (Version 1)
Quarter: 2014Q4

REPORT INFORMATION
  Report Type: Spontaneous
  Country: FR (occurrence: FR)
  Receive Date: 20141105
  Receipt Date: 20141105
  Transmission Date: 20150529
  Serious: Yes (Life-Threatening)
  Sender: FDA-Public Use
  Company Number: FR-JNJFOC-20141019553

PATIENT
  Age: 74 Year
  Sex: Female

DRUGS (9)
  1. ORACILLINE [Concomitant]
     Active Substance: PENICILLIN V
     Route: 065
  2. XARELTO [Suspect]
     Active Substance: RIVAROXABAN
     Indication: EMBOLISM VENOUS
     Route: 048
     Dates: start: 20140930, end: 20141005
  3. CORDARONE [Concomitant]
     Active Substance: AMIODARONE HYDROCHLORIDE
     Route: 065
     Dates: start: 20141003
  4. XARELTO [Suspect]
     Active Substance: RIVAROXABAN
     Indication: PULMONARY EMBOLISM
     Route: 048
     Dates: start: 20140930, end: 20141005
  5. LOVENOX [Concomitant]
     Active Substance: ENOXAPARIN SODIUM
     Route: 065
  6. ARIXTRA [Concomitant]
     Active Substance: FONDAPARINUX SODIUM
     Route: 065
     Dates: start: 20140930
  7. DIGOXINE [Concomitant]
     Active Substance: DIGOXIN
     Route: 065
     Dates: start: 20141001, end: 20141004
  8. DOLIPRANE [Concomitant]
     Active Substance: ACETAMINOPHEN
     Route: 065
     Dates: start: 20141002, end: 20141004
  9. AUGMENTIN [Concomitant]
     Active Substance: AMOXICILLIN\CLAVULANATE POTASSIUM
     Route: 065
     Dates: start: 20141003

REACTIONS (2)
  - Condition aggravated [Recovering/Resolving]
  - Therapeutic response decreased [Recovering/Resolving]

NARRATIVE: CASE EVENT DATE: 20141005
